FAERS Safety Report 7580593-6 (Version None)
Quarter: 2011Q2

REPORT INFORMATION
  Report Type: 
  Country: None (occurrence: None)
  Receive Date: 20110629
  Receipt Date: 20110609
  Transmission Date: 20111010
  Serious: Yes (Hospitalization, Other)
  Sender: FDA-Public Use
  Company Number: B0726704A

PATIENT
  Sex: Male
  Weight: 81 kg

DRUGS (3)
  1. VIMPAT [Concomitant]
     Indication: EPILEPSY
     Dosage: 150MG PER DAY
     Route: 048
  2. TRILEPTAL [Concomitant]
     Indication: EPILEPSY
     Dosage: 1500MG PER DAY
     Route: 048
  3. TROBALT (EZOGABINE) [Suspect]
     Indication: EPILEPSY
     Dosage: 150MG PER DAY
     Route: 048
     Dates: start: 20110525, end: 20110607

REACTIONS (2)
  - ABDOMINAL PAIN [None]
  - URINARY RETENTION [None]
